FAERS Safety Report 4362482-3 (Version None)
Quarter: 2004Q2

REPORT INFORMATION
  Report Type: 
  Country: None (occurrence: None)
  Receive Date: 20040518
  Receipt Date: 20040507
  Transmission Date: 20050107
  Serious: Yes (Death)
  Sender: FDA-Public Use
  Company Number: US-JNJFOC-20040501666

PATIENT
  Age: 87 Year
  Sex: Female

DRUGS (8)
  1. INFLIXIMAB (INFLIXIMAB, RECOMBINANT) LYOPHILIZED POWDER [Suspect]
     Indication: RHEUMATOID ARTHRITIS
     Dosage: INTRAVENOUS
     Route: 042
     Dates: start: 20010619, end: 20030521
  2. PREDNISONE [Concomitant]
  3. PROTONIX [Concomitant]
  4. CALCIUM (CALCIUM) [Concomitant]
  5. MULTIVITAMIN (MULTIVITAMINS) [Concomitant]
  6. ASPIRIN [Concomitant]
  7. OGEN [Concomitant]
  8. FOLIC ACID [Concomitant]

REACTIONS (1)
  - NON-HODGKIN'S LYMPHOMA [None]
